FAERS Safety Report 9225005 (Version 1)
Quarter: 2013Q2

REPORT INFORMATION
  Report Type: Spontaneous
  Country: US (occurrence: US)
  Receive Date: 20130411
  Receipt Date: 20130411
  Transmission Date: 20140414
  Serious: Yes (Other)
  Sender: FDA-Public Use
  Company Number: US-JNJFOC-20130403970

PATIENT
  Sex: Male
  Weight: 72.58 kg

DRUGS (5)
  1. NUCYNTA [Suspect]
     Indication: BACK PAIN
     Route: 048
  2. NUCYNTA [Suspect]
     Indication: NEUROPATHY PERIPHERAL
     Route: 048
  3. MORPHINE [Suspect]
     Indication: PRODUCT USED FOR UNKNOWN INDICATION
     Route: 065
  4. HYDROMORPHONE [Suspect]
     Indication: PRODUCT USED FOR UNKNOWN INDICATION
     Route: 065
  5. OPANA ER [Suspect]
     Indication: BACK PAIN
     Dosage: TWICE A DAY
     Route: 048

REACTIONS (4)
  - Surgery [Unknown]
  - Adverse drug reaction [Recovered/Resolved]
  - Drug ineffective [Not Recovered/Not Resolved]
  - Incorrect dose administered [Not Recovered/Not Resolved]
